FAERS Safety Report 15204506 (Version 3)
Quarter: 2019Q2

REPORT INFORMATION
  Report Type: Report from Study
  Country: FR (occurrence: FR)
  Receive Date: 20180726
  Receipt Date: 20190404
  Transmission Date: 20190711
  Serious: Yes (Hospitalization)
  Sender: FDA-Public Use
  Company Number: FR-MYLANLABS-2018M1055202

PATIENT
  Age: 43 Year
  Sex: Male
  Weight: 70 kg

DRUGS (5)
  1. BEVACIZUMAB. [Suspect]
     Active Substance: BEVACIZUMAB
     Indication: COLORECTAL CANCER METASTATIC
     Dosage: UNK
     Route: 065
     Dates: start: 20171017
  2. IRINOTECAN [Suspect]
     Active Substance: IRINOTECAN
     Indication: COLORECTAL CANCER METASTATIC
     Dosage: UNK
     Route: 065
     Dates: start: 20171017, end: 20171114
  3. 5 FLUOROURACIL                     /00098801/ [Suspect]
     Active Substance: FLUOROURACIL
     Dosage: UNK
     Dates: start: 20171017
  4. OXALIPLATIN. [Suspect]
     Active Substance: OXALIPLATIN
     Indication: COLORECTAL CANCER METASTATIC
     Dosage: UNK
     Route: 065
     Dates: start: 20171017
  5. 5 FLUOROURACIL                     /00098801/ [Suspect]
     Active Substance: FLUOROURACIL
     Indication: COLORECTAL CANCER METASTATIC
     Dosage: UNK
     Route: 065
     Dates: start: 20171017

REACTIONS (6)
  - General physical health deterioration [Recovered/Resolved]
  - Pyrexia [Recovered/Resolved]
  - Epistaxis [Unknown]
  - Acral peeling skin syndrome [Unknown]
  - Diarrhoea [Recovered/Resolved]
  - Vomiting [Recovered/Resolved]

NARRATIVE: CASE EVENT DATE: 20171031
